FAERS Safety Report 19604053 (Version 2)
Quarter: 2021Q3

REPORT INFORMATION
  Report Type: Spontaneous
  Country: DE (occurrence: DE)
  Receive Date: 20210724
  Receipt Date: 20210806
  Transmission Date: 20211014
  Serious: Yes (Hospitalization, Other)
  Sender: FDA-Public Use
  Company Number: DE-TORRENT-00020773

PATIENT
  Age: 80 Year
  Sex: Female

DRUGS (3)
  1. TRAZODON [Suspect]
     Active Substance: TRAZODONE HYDROCHLORIDE
     Indication: PRODUCT USED FOR UNKNOWN INDICATION
     Dosage: SINCE AT LEAST 2017 UNTIL FURTHER NOTICE
     Dates: start: 2017
  2. VENLAFAXINE [Suspect]
     Active Substance: VENLAFAXINE HYDROCHLORIDE
     Indication: PRODUCT USED FOR UNKNOWN INDICATION
     Dosage: UNTIL FURTHER NOTICE
     Dates: start: 20210527
  3. ZOPICLON [Interacting]
     Active Substance: ZOPICLONE
     Indication: PRODUCT USED FOR UNKNOWN INDICATION
     Dosage: SINCE AT LEAST 2007
     Dates: start: 2007

REACTIONS (2)
  - Drug interaction [Unknown]
  - Accommodation disorder [Unknown]

NARRATIVE: CASE EVENT DATE: 20210514
